FAERS Safety Report 4662106-1 (Version None)
Quarter: 2005Q2

REPORT INFORMATION
  Report Type: 
  Country: None (occurrence: None)
  Receive Date: 20050512
  Receipt Date: 20050505
  Transmission Date: 20051028
  Serious: Yes (Hospitalization, Other)
  Sender: FDA-Public Use
  Company Number: 2005070803

PATIENT
  Age: 79 Year
  Sex: Female

DRUGS (5)
  1. LIPITOR [Suspect]
     Indication: ILL-DEFINED DISORDER
     Dosage: ORAL
     Route: 048
     Dates: start: 20050401, end: 20050430
  2. ASCORBIC ACID/COPPER/RETINOL/TOCOPHEROL/ZINC (ASCORBIC ACID, COPPER, R [Suspect]
     Indication: VITAMIN SUPPLEMENTATION
     Dosage: ORAL
     Route: 048
     Dates: start: 20050429, end: 20050503
  3. ASPIRIN [Concomitant]
  4. MULTIVITAMINS (ASCORBIC ACID, ERGOCALCIFEROL, FOLIC ACID, NICOTINAMIDE [Concomitant]
  5. ATENOLOL [Concomitant]

REACTIONS (8)
  - CONSTIPATION [None]
  - DIZZINESS [None]
  - FIBROMYALGIA [None]
  - MOBILITY DECREASED [None]
  - NAUSEA [None]
  - SINUS DISORDER [None]
  - VERTIGO [None]
  - VOMITING [None]
